FAERS Safety Report 25454332 (Version 1)
Quarter: 2025Q2

REPORT INFORMATION
  Report Type: Spontaneous
  Country: US (occurrence: US)
  Receive Date: 20250619
  Receipt Date: 20250619
  Transmission Date: 20250716
  Serious: No
  Sender: ELI LILLY AND COMPANY
  Company Number: US-ELI_LILLY_AND_COMPANY-US202506016951

PATIENT
  Age: 74 Year

DRUGS (1)
  1. TRULICITY [Suspect]
     Active Substance: DULAGLUTIDE
     Indication: Type 2 diabetes mellitus
     Route: 058

REACTIONS (6)
  - Dyskinesia [Unknown]
  - Panic attack [Unknown]
  - Anxiety [Unknown]
  - Nervousness [Unknown]
  - Injection site pain [Unknown]
  - Accidental underdose [Unknown]
